FAERS Safety Report 4876626-8 (Version None)
Quarter: 2005Q4

REPORT INFORMATION
  Report Type: 
  Country: None (occurrence: None)
  Receive Date: 20051206
  Receipt Date: 20050830
  Transmission Date: 20060501
  Serious: No
  Sender: FDA-Public Use
  Company Number: USA0506101365

PATIENT
  Age: 65 Year
  Sex: Female

DRUGS (2)
  1. CYMBALTA [Suspect]
     Indication: DEPRESSION
     Dosage: 30 MG DAY
     Dates: start: 20050501
  2. THYROLAR [Concomitant]

REACTIONS (2)
  - BLOOD PRESSURE INCREASED [None]
  - INTRAOCULAR PRESSURE INCREASED [None]
